FAERS Safety Report 8717474 (Version 2)
Quarter: 2012Q4

REPORT INFORMATION
  Report Type: 
  Country: DE (occurrence: DE)
  Receive Date: 20120810
  Receipt Date: 20121005
  Transmission Date: 20130627
  Serious: Yes (Death, Hospitalization)
  Sender: FDA-Public Use
  Company Number: DE-JNJFOC-20120804739

PATIENT
  Age: 77 Year
  Sex: Female
  Weight: 62 kg

DRUGS (6)
  1. XARELTO [Suspect]
     Indication: CEREBROVASCULAR ACCIDENT PROPHYLAXIS
     Route: 065
     Dates: start: 20120326, end: 20120328
  2. XARELTO [Suspect]
     Indication: ATRIAL FIBRILLATION
     Route: 065
     Dates: start: 20120326, end: 20120328
  3. CONCOR [Concomitant]
     Dates: end: 20110630
  4. DIGIMERCK [Concomitant]
     Dates: end: 20110630
  5. TORASEMID [Concomitant]
     Dates: end: 20110630
  6. AMILORETIK [Concomitant]
     Dates: end: 20110630

REACTIONS (4)
  - Haemorrhage [Fatal]
  - Bronchopneumonia [Fatal]
  - Deep vein thrombosis [Fatal]
  - Pleural effusion [Fatal]
